FAERS Safety Report 5570867-2 (Version None)
Quarter: 2007Q4

REPORT INFORMATION
  Report Type: 
  Country: None (occurrence: None)
  Receive Date: 20071221
  Receipt Date: 20071213
  Transmission Date: 20080405
  Serious: Yes (Hospitalization)
  Sender: FDA-Public Use
  Company Number: US-AMGEN-QUU256888

PATIENT
  Sex: Female

DRUGS (1)
  1. ENBREL [Suspect]
     Indication: RHEUMATOID ARTHRITIS
     Route: 058
     Dates: start: 20021101

REACTIONS (10)
  - ARTHRALGIA [None]
  - FEELING COLD [None]
  - FURUNCLE [None]
  - HYPOAESTHESIA [None]
  - INFECTION [None]
  - LOCALISED INFECTION [None]
  - PARAESTHESIA [None]
  - RASH [None]
  - RHEUMATOID ARTHRITIS [None]
  - VASCULITIS [None]
